FAERS Safety Report 6387702-5 (Version None)
Quarter: 2009Q4

REPORT INFORMATION
  Report Type: 
  Country: None (occurrence: None)
  Receive Date: 20091005
  Receipt Date: 20090928
  Transmission Date: 20100525
  Serious: No
  Sender: FDA-Public Use
  Company Number: US-B.I. PHARMACEUTICALS,INC./RIDGEFIELD-2009-BP-11340BP

PATIENT
  Age: 69 Year
  Sex: Male

DRUGS (1)
  1. MIRAPEX [Suspect]
     Indication: RESTLESS LEGS SYNDROME
     Dosage: 0.25 MG
     Route: 048
     Dates: start: 20060101

REACTIONS (7)
  - ABNORMAL DREAMS [None]
  - ANGER [None]
  - CONDITION AGGRAVATED [None]
  - DIZZINESS [None]
  - FATIGUE [None]
  - RESTLESS LEGS SYNDROME [None]
  - SOMNOLENCE [None]
